FAERS Safety Report 15833515 (Version 1)
Quarter: 2019Q1

REPORT INFORMATION
  Report Type: Spontaneous
  Country: US (occurrence: US)
  Receive Date: 20190116
  Receipt Date: 20190116
  Transmission Date: 20190417
  Serious: Yes (Other)
  Sender: FDA-Public Use
  Company Number: None

PATIENT
  Age: 16 Year
  Sex: Male
  Weight: 61.3 kg

DRUGS (3)
  1. REMICADE [Suspect]
     Active Substance: INFLIXIMAB
     Indication: CROHN^S DISEASE
     Dosage: ?          OTHER FREQUENCY:EVERY 8 WEEKS;?
     Route: 041
     Dates: start: 20190115, end: 20190115
  2. APRISO [Concomitant]
     Active Substance: MESALAMINE
     Dates: start: 20180716
  3. OMEPRAZOLE. [Concomitant]
     Active Substance: OMEPRAZOLE
     Dates: start: 20180716

REACTIONS (4)
  - Anaphylactic reaction [None]
  - Chest pain [None]
  - Abdominal pain [None]
  - Oxygen saturation decreased [None]

NARRATIVE: CASE EVENT DATE: 20190115
